FAERS Safety Report 25504212 (Version 1)
Quarter: 2025Q3

REPORT INFORMATION
  Report Type: Spontaneous
  Country: US (occurrence: None)
  Receive Date: 20250701
  Receipt Date: 20250701
  Transmission Date: 20251020
  Serious: No
  Sender: FDA-CTU
  Company Number: None

PATIENT

DRUGS (1)
  1. AMOXICILLIN\CLAVULANIC ACID [Suspect]
     Active Substance: AMOXICILLIN\CLAVULANIC ACID

REACTIONS (5)
  - Product complaint [None]
  - Product preparation error [None]
  - Product compounding quality issue [None]
  - Liquid product physical issue [None]
  - Incorrect dose administered [None]

NARRATIVE: CASE EVENT DATE: 20250630
